FAERS Safety Report 5781467-3 (Version None)
Quarter: 2008Q2

REPORT INFORMATION
  Report Type: 
  Country: None (occurrence: None)
  Receive Date: 20080623
  Receipt Date: 20071217
  Transmission Date: 20081010
  Serious: No
  Sender: FDA-Public Use
  Company Number: US-ASTRAZENECA-2007UW28532

PATIENT
  Age: 28 Year
  Sex: Female
  Weight: 74.8 kg

DRUGS (3)
  1. ENTOCORT EC [Suspect]
     Indication: CROHN'S DISEASE
     Route: 048
     Dates: start: 20071201
  2. ASACOL [Concomitant]
  3. LEVBID [Concomitant]

REACTIONS (3)
  - DYSPNOEA [None]
  - TREMOR [None]
  - VISION BLURRED [None]
